FAERS Safety Report 12933672 (Version 2)
Quarter: 2016Q4

REPORT INFORMATION
  Report Type: Report from Study
  Country: MX (occurrence: MX)
  Receive Date: 20161111
  Receipt Date: 20161116
  Transmission Date: 20170207
  Serious: Yes (Other)
  Sender: FDA-Public Use
  Company Number: PHHY2016MX154836

PATIENT
  Sex: Female
  Weight: 67 kg

DRUGS (5)
  1. GALVUS MET [Suspect]
     Active Substance: METFORMIN HYDROCHLORIDE\VILDAGLIPTIN
     Dosage: 1 DF (METFORMIN 500 MG AND VILDAGLIPTION 50MG), QD
     Route: 048
     Dates: start: 201608
  2. CO-DIOVAN [Suspect]
     Active Substance: HYDROCHLOROTHIAZIDE\VALSARTAN
     Indication: HYPERTENSION
     Dosage: 1 DF (HYDROCHLOROTHIAZIDE 12.5 MG AND VALSARTAN 160 MG), QD (STARTED FROM 10 YEARS AGO)
     Route: 048
     Dates: start: 201506
  3. METOPROLOL. [Concomitant]
     Active Substance: METOPROLOL
     Indication: HYPERTENSION
     Dosage: 1 DF, QD
     Route: 065
     Dates: start: 201303
  4. GALVUS MET [Suspect]
     Active Substance: METFORMIN HYDROCHLORIDE\VILDAGLIPTIN
     Indication: DIABETES MELLITUS
     Dosage: 3 DF (METFORMIN 500 MG AND VILDAGLIPTION 50MG), QD
     Route: 065
  5. ZYLOPRIM [Concomitant]
     Active Substance: ALLOPURINOL
     Indication: PRODUCT USED FOR UNKNOWN INDICATION
     Route: 065

REACTIONS (4)
  - Limb injury [Recovered/Resolved]
  - Incorrect dose administered [Unknown]
  - Gait disturbance [Unknown]
  - Limb discomfort [Recovered/Resolved]
